FAERS Safety Report 10155115 (Version 1)
Quarter: 2014Q2

REPORT INFORMATION
  Report Type: Spontaneous
  Country: DK (occurrence: GB)
  Receive Date: 20140506
  Receipt Date: 20140506
  Transmission Date: 20141212
  Serious: Yes (Congenital Anomaly)
  Sender: FDA-Public Use
  Company Number: GB-FRI-1000067081

PATIENT
  Sex: 0

DRUGS (2)
  1. CITALOPRAM [Suspect]
     Route: 064
  2. ZOLPIDEM [Concomitant]

REACTIONS (4)
  - Cardiac septal defect [Not Recovered/Not Resolved]
  - Congenital aortic anomaly [Not Recovered/Not Resolved]
  - Congenital pulmonary valve atresia [Not Recovered/Not Resolved]
  - Foetal exposure during pregnancy [Not Recovered/Not Resolved]
